FAERS Safety Report 5023292-7 (Version None)
Quarter: 2006Q2

REPORT INFORMATION
  Report Type: 
  Country: None (occurrence: None)
  Receive Date: 20060606
  Receipt Date: 20060519
  Transmission Date: 20061013
  Serious: Yes (Hospitalization)
  Sender: FDA-Public Use
  Company Number: 225793

PATIENT
  Age: 57 Year
  Sex: Male
  Weight: 70 kg

DRUGS (3)
  1. AVASTIN [Suspect]
     Indication: COLORECTAL CANCER
     Dosage: 525 MG, Q3W, INTRAVENOUS
     Route: 042
     Dates: start: 20060412
  2. CAPECITABINE (CAPECTIABINE) [Suspect]
     Indication: COLORECTAL CANCER
     Dosage: 1850 MG, QD, ORAL
     Route: 048
     Dates: start: 20060412, end: 20060418
  3. IRINOTECAN HCL [Suspect]
     Indication: COLORECTAL CANCER
     Dosage: 375 MG, Q3W, INTRAVENOUS
     Route: 042
     Dates: start: 20060412

REACTIONS (2)
  - DIARRHOEA [None]
  - PYREXIA [None]
